FAERS Safety Report 25968051 (Version 1)
Quarter: 2025Q4

REPORT INFORMATION
  Report Type: Spontaneous
  Country: US (occurrence: US)
  Receive Date: 20251028
  Receipt Date: 20251028
  Transmission Date: 20260118
  Serious: No
  Sender: CELLTRION
  Company Number: US-CELLTRION INC.-2024US031068

PATIENT

DRUGS (9)
  1. INFLIXIMAB [Suspect]
     Active Substance: INFLIXIMAB
     Indication: Colitis ulcerative
     Dosage: 11 MG/KG (500 MG)/HOSPITAL DAY 3
  2. INFLIXIMAB [Suspect]
     Active Substance: INFLIXIMAB
     Dosage: 11 MG/KG (500 MG)/HOSPITAL DAY 10
  3. UPADACITINIB [Suspect]
     Active Substance: UPADACITINIB
     Indication: Colitis ulcerative
     Dosage: 45 MG DAILY/HOSPITAL DAY16
  4. UPADACITINIB [Suspect]
     Active Substance: UPADACITINIB
     Dosage: 30 MG DAILY/MAINTENANCE THERAPY
  5. METRONIDAZOLE [Concomitant]
     Active Substance: METRONIDAZOLE
  6. AMOXICILLIN [Concomitant]
     Active Substance: AMOXICILLIN
     Dosage: X QD
     Route: 048
  7. DOXYCYCLINE [Concomitant]
     Active Substance: DOXYCYCLINE
  8. VANCOMYCIN [Concomitant]
     Active Substance: VANCOMYCIN
  9. CORTICOSTEROID NOS [Concomitant]
     Active Substance: CORTICOSTEROID NOS
     Dosage: 40 MG DAILY

REACTIONS (2)
  - Therapy non-responder [Unknown]
  - Intentional product use issue [Unknown]
